FAERS Safety Report 6060124-2 (Version None)
Quarter: 2009Q1

REPORT INFORMATION
  Report Type: 
  Country: None (occurrence: None)
  Receive Date: 20090128
  Receipt Date: 20090113
  Transmission Date: 20090719
  Serious: Yes (Hospitalization)
  Sender: FDA-Public Use
  Company Number: 2009S1000715

PATIENT
  Age: 42 Year
  Sex: Male

DRUGS (8)
  1. SIMVASTATIN [Suspect]
     Indication: HYPERCHOLESTEROLAEMIA
     Dosage: 20 MG; DAILY; ORAL
     Route: 048
     Dates: start: 20080701, end: 20081023
  2. IBUPROFEN TABLETS [Suspect]
     Indication: PAIN
     Dosage: 800 MG; ORAL
     Route: 048
     Dates: start: 20081019, end: 20081021
  3. FLUPIRTINE MALEATE [Suspect]
     Indication: PAIN
     Dosage: 200 MG; DAILY; ORAL
     Route: 048
     Dates: start: 20080717, end: 20081016
  4. DICLAC (DICLOFENAC) [Suspect]
     Indication: PAIN
     Dosage: 50 MG; TWICE A DAY; ORAL
     Route: 048
     Dates: start: 20081017, end: 20081018
  5. JANUVIA [Concomitant]
  6. METFORMIN HCL [Concomitant]
  7. PANTOZOL [Concomitant]
  8. VIAGRA [Concomitant]

REACTIONS (2)
  - DRUG INTERACTION [None]
  - HEPATIC ENZYME INCREASED [None]
